FAERS Safety Report 7644850-7 (Version None)
Quarter: 2011Q3

REPORT INFORMATION
  Report Type: 
  Country: None (occurrence: None)
  Receive Date: 20110725
  Receipt Date: 20110715
  Transmission Date: 20111222
  Serious: Yes (Other)
  Sender: FDA-Public Use
  Company Number: 2011-00763

PATIENT
  Age: 49 Year
  Sex: Male
  Weight: 81 kg

DRUGS (7)
  1. DIHYDROCODEINE TARTRATE + PARACETAMOL (CO-DYDRAMOL) (UNKNOWN) [Concomitant]
  2. SIMVASTATIN [Suspect]
     Indication: PRODUCT USED FOR UNKNOWN INDICATION
  3. TRAMADOL HCL [Concomitant]
  4. ASPIRIN [Concomitant]
  5. RAMIPRIL [Concomitant]
  6. DIPYRIDAMOLE [Concomitant]
  7. SIMVASTATIN [Concomitant]

REACTIONS (4)
  - BLOOD CREATINE PHOSPHOKINASE INCREASED [None]
  - PAIN IN EXTREMITY [None]
  - MYALGIA [None]
  - MYOSITIS [None]
